FAERS Safety Report 6383889-9 (Version None)
Quarter: 2009Q3

REPORT INFORMATION
  Report Type: 
  Country: None (occurrence: None)
  Receive Date: 20090928
  Receipt Date: 20090916
  Transmission Date: 20100115
  Serious: Yes (Other)
  Sender: FDA-Public Use
  Company Number: 8052381

PATIENT
  Sex: Male

DRUGS (1)
  1. KEPPRA [Suspect]
     Dates: end: 20090911

REACTIONS (1)
  - ENCEPHALOPATHY [None]
